FAERS Safety Report 7387315-2 (Version None)
Quarter: 2011Q1

REPORT INFORMATION
  Report Type: 
  Country: None (occurrence: None)
  Receive Date: 20110331
  Receipt Date: 20110328
  Transmission Date: 20110831
  Serious: Yes (Other)
  Sender: FDA-Public Use
  Company Number: FR-AMGEN-FRASP2011016312

PATIENT
  Age: 60 Year
  Sex: Male

DRUGS (1)
  1. NPLATE [Suspect]
     Indication: PRODUCT USED FOR UNKNOWN INDICATION
     Dosage: 250 A?G, UNK

REACTIONS (2)
  - THERAPEUTIC RESPONSE DECREASED [None]
  - PLATELET COUNT DECREASED [None]
